FAERS Safety Report 17400304 (Version 1)
Quarter: 2020Q1

REPORT INFORMATION
  Report Type: Spontaneous
  Country: PR (occurrence: PR)
  Receive Date: 20200125
  Receipt Date: 20200125
  Transmission Date: 20200409
  Serious: Yes (Hospitalization)
  Sender: FDA-Public Use
  Company Number: None

PATIENT
  Age: 41 Year
  Sex: Female
  Weight: 56.25 kg

DRUGS (3)
  1. LORATADINE. [Suspect]
     Active Substance: LORATADINE
     Indication: MULTIPLE ALLERGIES
     Dates: start: 20200123, end: 20200125
  2. ALBUTEROL. [Concomitant]
     Active Substance: ALBUTEROL
  3. COUGH NOS [Concomitant]
     Active Substance: DEXTROMETHORPHAN HYDROBROMIDE OR DEXTROMETHORPHAN HYDROBROMIDE\DOXYLAMINE SUCCINATE OR DEXTROMETHORPHAN HYDROBROMIDE\GUAIFENESIN OR GUAIFENESIN

REACTIONS (11)
  - Rash [None]
  - Urticaria [None]
  - Swollen tongue [None]
  - Pruritus [None]
  - Pharyngeal swelling [None]
  - Lip swelling [None]
  - Peripheral swelling [None]
  - Swelling [None]
  - Eye swelling [None]
  - Joint swelling [None]
  - Dysphonia [None]

NARRATIVE: CASE EVENT DATE: 20200125
